FAERS Safety Report 5013004-5 (Version None)
Quarter: 2006Q2

REPORT INFORMATION
  Report Type: 
  Country: None (occurrence: None)
  Receive Date: 20060530
  Receipt Date: 20060519
  Transmission Date: 20061013
  Serious: Yes (Life-Threatening, Hospitalization)
  Sender: FDA-Public Use
  Company Number: CH-BRISTOL-MYERS SQUIBB COMPANY-13386750

PATIENT
  Age: 78 Year
  Sex: Female

DRUGS (9)
  1. GLUCOPHAGE [Suspect]
     Indication: DIABETES MELLITUS NON-INSULIN-DEPENDENT
     Route: 048
     Dates: start: 20000101, end: 20060220
  2. LISITRIL [Suspect]
     Indication: ESSENTIAL HYPERTENSION
     Route: 048
     Dates: start: 20060209, end: 20060220
  3. SINTROM [Concomitant]
     Indication: ATRIAL FIBRILLATION
     Route: 048
  4. CLEXANE [Concomitant]
     Indication: ATRIAL FLUTTER
     Route: 058
  5. SELIPRAN [Concomitant]
     Indication: HYPERCHOLESTEROLAEMIA
     Route: 048
  6. TORSEMIDE [Concomitant]
     Indication: ESSENTIAL HYPERTENSION
     Route: 048
  7. FOLVITE [Concomitant]
     Indication: HYPOVITAMINOSIS
     Route: 048
  8. ACETAMINOPHEN [Concomitant]
     Indication: PAIN
     Route: 048
  9. BELOC [Concomitant]
     Indication: ESSENTIAL HYPERTENSION
     Route: 048

REACTIONS (5)
  - DIARRHOEA [None]
  - LACTIC ACIDOSIS [None]
  - NAUSEA [None]
  - RENAL FAILURE CHRONIC [None]
  - VOMITING [None]
